FAERS Safety Report 5815877-2 (Version None)
Quarter: 2008Q3

REPORT INFORMATION
  Report Type: 
  Country: None (occurrence: None)
  Receive Date: 20080716
  Receipt Date: 20070628
  Transmission Date: 20090109
  Serious: Yes (Other)
  Sender: FDA-Public Use
  Company Number: WWISSUE-98

PATIENT

DRUGS (1)
  1. LISINOPRIL [Suspect]
     Dosage: 20 MG
     Dates: start: 20070206, end: 20070731

REACTIONS (1)
  - HYPERTENSION [None]
